FAERS Safety Report 20302111 (Version 2)
Quarter: 2022Q1

REPORT INFORMATION
  Report Type: Spontaneous
  Country: US (occurrence: None)
  Receive Date: 20220105
  Receipt Date: 20220223
  Transmission Date: 20220424
  Serious: No
  Sender: FDA-Public Use
  Company Number: 2021A900288

PATIENT
  Age: 83 Year
  Sex: Female
  Weight: 69.4 kg

DRUGS (1)
  1. SYMBICORT [Suspect]
     Active Substance: BUDESONIDE\FORMOTEROL FUMARATE DIHYDRATE
     Indication: Chronic obstructive pulmonary disease
     Dosage: 160/4.5, UNKNOWN FREQUENCY UNKNOWN
     Route: 055

REACTIONS (8)
  - Amnesia [Unknown]
  - Visual impairment [Unknown]
  - Panic attack [Unknown]
  - Asthma [Unknown]
  - Bronchitis [Unknown]
  - Weight decreased [Unknown]
  - Infection [Unknown]
  - Device leakage [Unknown]

NARRATIVE: CASE EVENT DATE: 20210101
